FAERS Safety Report 7592255-X (Version None)
Quarter: 2011Q3

REPORT INFORMATION
  Report Type: 
  Country: None (occurrence: None)
  Receive Date: 20110706
  Receipt Date: 20110704
  Transmission Date: 20111222
  Serious: Yes (Other)
  Sender: FDA-Public Use
  Company Number: NO-TEVA-289089ISR

PATIENT
  Age: 51 Year
  Sex: Female

DRUGS (1)
  1. COPAXONE [Suspect]
     Dosage: 20 MILLIGRAM;
     Route: 058
     Dates: start: 20030101

REACTIONS (6)
  - SYSTEMIC SCLEROSIS [None]
  - FLATULENCE [None]
  - ABDOMINAL DISCOMFORT [None]
  - TINNITUS [None]
  - FATIGUE [None]
  - HEADACHE [None]
